FAERS Safety Report 5512178-7 (Version None)
Quarter: 2007Q4

REPORT INFORMATION
  Report Type: 
  Country: None (occurrence: None)
  Receive Date: 20071112
  Receipt Date: 20071107
  Transmission Date: 20080405
  Serious: Yes (Life-Threatening, Hospitalization)
  Sender: FDA-Public Use
  Company Number: PHBS2007HK18653

PATIENT
  Age: 86 Year
  Sex: Male

DRUGS (4)
  1. SLOW-K [Suspect]
     Indication: BLOOD POTASSIUM DECREASED
     Dosage: 42 G, ONCE/SINGLE
     Route: 048
     Dates: start: 20070301
  2. SLOW-K [Suspect]
     Dosage: 1200 MG/DAY
     Route: 048
  3. INDAPAMIDE [Suspect]
     Dosage: 102.5 MG, ONCE/SINGLE
     Route: 048
  4. INDAPAMIDE [Suspect]
     Dosage: 2.5 MG/DAY
     Route: 048

REACTIONS (5)
  - DEHYDRATION [None]
  - FATIGUE [None]
  - HYPERKALAEMIA [None]
  - HYPOTENSION [None]
  - OVERDOSE [None]
